FAERS Safety Report 13122165 (Version 2)
Quarter: 2017Q1

REPORT INFORMATION
  Report Type: Spontaneous
  Country: FR (occurrence: FR)
  Receive Date: 20170117
  Receipt Date: 20170310
  Transmission Date: 20170428
  Serious: Yes (Other)
  Sender: FDA-Public Use
  Company Number: FR-ABBVIE-17P-056-1834609-00

PATIENT
  Age: 46 Year
  Sex: Male
  Weight: 94 kg

DRUGS (3)
  1. NEBIVOLOL. [Concomitant]
     Active Substance: NEBIVOLOL
     Indication: HYPERTENSION
  2. HUMIRA [Suspect]
     Active Substance: ADALIMUMAB
     Indication: CROHN^S DISEASE
     Route: 058
  3. HUMIRA [Suspect]
     Active Substance: ADALIMUMAB
     Route: 058

REACTIONS (4)
  - Fatigue [Unknown]
  - Cerebrovascular accident [Recovering/Resolving]
  - Headache [Recovering/Resolving]
  - Visual impairment [Recovered/Resolved]

NARRATIVE: CASE EVENT DATE: 20170102
